FAERS Safety Report 16897961 (Version 2)
Quarter: 2019Q4

REPORT INFORMATION
  Report Type: Spontaneous
  Country: JP (occurrence: JP)
  Receive Date: 20191009
  Receipt Date: 20191025
  Transmission Date: 20200122
  Serious: Yes (Other)
  Sender: FDA-Public Use
  Company Number: JP-PFIZER INC-2019426849

PATIENT
  Age: 9 Year
  Sex: Male

DRUGS (3)
  1. L-ISOPRENALINE HYDROCHLORIDE [Suspect]
     Active Substance: LEVISOPRENALINE HYDROCHLORIDE
     Indication: CARDIAC ABLATION
     Dosage: UNK, 1X/DAY
     Route: 042
     Dates: start: 20180612
  2. PRECEDEX [Suspect]
     Active Substance: DEXMEDETOMIDINE HYDROCHLORIDE
     Indication: CARDIAC ABLATION
     Dosage: 0.5-0.8 UG/KG/H FOR 4 HOURS
     Route: 042
     Dates: start: 20180612, end: 20180612
  3. PROTAMINE [Suspect]
     Active Substance: PROTAMINE
     Indication: CARDIAC ABLATION
     Dosage: 20 MG, 1X/DAY
     Route: 042
     Dates: start: 20180612

REACTIONS (6)
  - Lymphocyte percentage increased [Unknown]
  - White blood cell count decreased [Unknown]
  - Haemoglobin decreased [Unknown]
  - Red blood cell count decreased [Unknown]
  - Platelet count decreased [Unknown]
  - Haematocrit decreased [Unknown]

NARRATIVE: CASE EVENT DATE: 20180612
